FAERS Safety Report 14490419 (Version 1)
Quarter: 2018Q1

REPORT INFORMATION
  Report Type: Report from Study
  Country: FI (occurrence: FI)
  Receive Date: 20180206
  Receipt Date: 20180206
  Transmission Date: 20180509
  Serious: Yes (Other)
  Sender: FDA-Public Use
  Company Number: FI-ROCHE-2066235

PATIENT

DRUGS (2)
  1. ATROPINE. [Concomitant]
     Active Substance: ATROPINE
     Route: 042
  2. DIAZEPAM. [Suspect]
     Active Substance: DIAZEPAM
     Indication: ANAESTHESIA
     Route: 065

REACTIONS (1)
  - Apnoea [Unknown]
